FAERS Safety Report 9489963 (Version 1)
Quarter: 2013Q3

REPORT INFORMATION
  Report Type: Spontaneous
  Country: US (occurrence: US)
  Receive Date: 20130829
  Receipt Date: 20130829
  Transmission Date: 20140515
  Serious: Yes (Other)
  Sender: FDA-Public Use
  Company Number: US-ABBOTT-13P-163-1137348-00

PATIENT
  Age: 50 Year
  Sex: Male
  Weight: 115.32 kg

DRUGS (1)
  1. ANDROGEL [Suspect]
     Indication: BLOOD TESTOSTERONE DECREASED
     Dosage: 5 GRAM PACKETS
     Route: 061
     Dates: start: 2011

REACTIONS (1)
  - Muscle rupture [Recovering/Resolving]
